FAERS Safety Report 5612878-4 (Version None)
Quarter: 2008Q1

REPORT INFORMATION
  Report Type: 
  Country: None (occurrence: None)
  Receive Date: 20080204
  Receipt Date: 20080123
  Transmission Date: 20080703
  Serious: Yes (Other)
  Sender: FDA-Public Use
  Company Number: US-PFIZER INC-2008007422

PATIENT
  Sex: Female

DRUGS (4)
  1. LYRICA [Suspect]
  2. ULTRAM [Concomitant]
  3. CLONAZEPAM [Concomitant]
  4. CARBAMAZEPINE [Concomitant]

REACTIONS (5)
  - ANGER [None]
  - CARPAL TUNNEL SYNDROME [None]
  - FIBROMYALGIA [None]
  - HYPOAESTHESIA [None]
  - MYOCLONUS [None]
